FAERS Safety Report 17910223 (Version 1)
Quarter: 2020Q2

REPORT INFORMATION
  Report Type: Spontaneous
  Country: DE (occurrence: DE)
  Receive Date: 20200617
  Receipt Date: 20200617
  Transmission Date: 20200714
  Serious: Yes (Hospitalization)
  Sender: FDA-Public Use
  Company Number: DE-009507513-2006DEU005819

PATIENT
  Age: 78 Year
  Sex: Male
  Weight: 43 kg

DRUGS (8)
  1. PEMBROLIZUMAB. [Suspect]
     Active Substance: PEMBROLIZUMAB
     Dosage: SINCE 08-JAN-2020 1ST CYCLE
  2. PANTOPRAZOLE [Concomitant]
     Active Substance: PANTOPRAZOLE
     Dosage: 40 MG, 1-0-0-0
  3. PACLITAXEL. [Suspect]
     Active Substance: PACLITAXEL
     Dosage: SINCE 08-JAN-2020 1ST CYCLE
  4. CARBOPLATIN. [Suspect]
     Active Substance: CARBOPLATIN
     Dosage: SINCE 08-JAN-2020 1ST CYCLE
  5. HYDROMORPHONE [Concomitant]
     Active Substance: HYDROMORPHONE
     Dosage: 8MG, ONE IN THE MORNING AND ONE IN THE EVENING, RETARD TABLETS
  6. METOCLOPRAMIDE. [Concomitant]
     Active Substance: METOCLOPRAMIDE
     Dosage: 10 MG, 1-1-1-0
  7. MOVICOL [Concomitant]
     Active Substance: POLYETHYLENE GLYCOL 3350\POTASSIUM CHLORIDE\SODIUM BICARBONATE\SODIUM CHLORIDE
     Dosage: 1-0-0-0
  8. FERRO SANOL COMP [Concomitant]
     Dosage: 1-0-0-0

REACTIONS (7)
  - Dysphagia [Unknown]
  - Decreased appetite [Unknown]
  - Cachexia [Unknown]
  - Haemoptysis [Unknown]
  - Constipation [Unknown]
  - General physical health deterioration [Unknown]
  - Pyrexia [Unknown]
